FAERS Safety Report 5874419-6 (Version None)
Quarter: 2008Q3

REPORT INFORMATION
  Report Type: 
  Country: None (occurrence: None)
  Receive Date: 20080908
  Receipt Date: 20080802
  Transmission Date: 20090109
  Serious: Yes (Other)
  Sender: FDA-Public Use
  Company Number: US-PFIZER INC-2008065024

PATIENT
  Sex: Male

DRUGS (6)
  1. CHANTIX [Suspect]
     Indication: SMOKING CESSATION THERAPY
     Dates: start: 20080627
  2. ENALAPRIL MALEATE [Concomitant]
  3. KLONOPIN [Concomitant]
  4. XANAX [Concomitant]
  5. NEURONTIN [Concomitant]
  6. LAMOTRIGINE [Concomitant]

REACTIONS (2)
  - SENSORY LOSS [None]
  - WALKING AID USER [None]
